FAERS Safety Report 5921682-9 (Version None)
Quarter: 2008Q4

REPORT INFORMATION
  Report Type: 
  Country: None (occurrence: None)
  Receive Date: 20081016
  Receipt Date: 20081016
  Transmission Date: 20090506
  Serious: Yes (Other)
  Sender: FDA-Public Use
  Company Number: None

PATIENT
  Sex: Male
  Weight: 88.4514 kg

DRUGS (8)
  1. REVLIMID [Suspect]
     Dosage: 20MG QD PO
     Route: 048
     Dates: start: 20080701, end: 20081014
  2. TAXOTERE [Suspect]
     Dosage: 75MG/M2 EVERY 3 WEEKS IV
     Route: 042
     Dates: start: 20080701, end: 20081014
  3. CRESTOR [Concomitant]
  4. HYTRIN [Concomitant]
  5. PREDNISONE TAB [Concomitant]
  6. CIPRO [Concomitant]
  7. LOVENOX [Concomitant]
  8. COUMADIN [Concomitant]

REACTIONS (1)
  - DEEP VEIN THROMBOSIS [None]
